FAERS Safety Report 9089575 (Version 1)
Quarter: 2013Q1

REPORT INFORMATION
  Report Type: Spontaneous
  Country: US (occurrence: US)
  Receive Date: 20130201
  Receipt Date: 20130201
  Transmission Date: 20140127
  Serious: No
  Sender: FDA-Public Use
  Company Number: US-GALDERMA-US-GDP-12414014

PATIENT
  Age: 20 Year
  Sex: Female

DRUGS (5)
  1. EPIDUO (ADAPALENE) [Suspect]
     Indication: ACNE
     Route: 061
     Dates: start: 20120514, end: 20120514
  2. CETAPHIL [Concomitant]
     Route: 061
  3. SINGULAIR [Concomitant]
     Dates: start: 2009
  4. ZYRTEC [Concomitant]
     Dates: start: 2009
  5. ALLERGY INJECTIONS [Concomitant]
     Dates: start: 2009

REACTIONS (5)
  - Eyelid oedema [Recovered/Resolved]
  - Swelling face [Recovered/Resolved]
  - Erythema [Recovered/Resolved]
  - Skin irritation [Recovered/Resolved]
  - Dermatitis allergic [Recovered/Resolved]
